FAERS Safety Report 16300717 (Version 1)
Quarter: 2019Q2

REPORT INFORMATION
  Report Type: Spontaneous
  Country: US (occurrence: US)
  Receive Date: 20190510
  Receipt Date: 20190510
  Transmission Date: 20190711
  Serious: Yes (Other)
  Sender: FDA-Public Use
  Company Number: US-PFIZER INC-2019196166

PATIENT
  Sex: Female

DRUGS (1)
  1. CELEBREX [Suspect]
     Active Substance: CELECOXIB
     Dosage: 100 MG, ONCE DAILY

REACTIONS (4)
  - Fatigue [Unknown]
  - Hypokinesia [Unknown]
  - Arthritis [Unknown]
  - Paraesthesia [Unknown]
